FAERS Safety Report 9122704 (Version 1)
Quarter: 2013Q1

REPORT INFORMATION
  Report Type: Spontaneous
  Country: US (occurrence: US)
  Receive Date: 20130115
  Receipt Date: 20130115
  Transmission Date: 20140127
  Serious: Yes (Other)
  Sender: FDA-Public Use
  Company Number: US-ALEXION PHARMACEUTICALS INC.-A201202551

PATIENT
  Age: 30 Year
  Sex: Male

DRUGS (1)
  1. SOLIRIS 300MG [Suspect]
     Indication: PAROXYSMAL NOCTURNAL HAEMOGLOBINURIA
     Dosage: UNK
     Route: 042
     Dates: start: 20121203

REACTIONS (8)
  - Platelet count decreased [Unknown]
  - Haemoglobin decreased [Unknown]
  - Dyspnoea [Unknown]
  - Heart rate increased [Unknown]
  - Blood pressure increased [Unknown]
  - Palpitations [Unknown]
  - Respiratory tract infection [Unknown]
  - Epistaxis [Unknown]
